FAERS Safety Report 8476808-2 (Version None)
Quarter: 2012Q2

REPORT INFORMATION
  Report Type: 
  Country: None (occurrence: None)
  Receive Date: 20120628
  Receipt Date: 20120618
  Transmission Date: 20120825
  Serious: Yes (Death, Hospitalization, Other)
  Sender: FDA-Public Use
  Company Number: US-BAYER-2012-053106

PATIENT
  Age: 82 Year
  Sex: Male
  Weight: 73 kg

DRUGS (6)
  1. ASPIRIN [Suspect]
     Dosage: 81 MG, UNK
  2. XARELTO [Interacting]
     Indication: PULMONARY EMBOLISM
     Dosage: 15 MG, UNK
     Route: 048
     Dates: start: 20120519, end: 20120520
  3. AMBIEN [Concomitant]
  4. CLOPIDOGREL [Concomitant]
     Dates: end: 20120519
  5. WARFARIN SODIUM [Concomitant]
     Dates: end: 20120517
  6. AMIODARONE HYDROCHLORIDE [Concomitant]
     Route: 048

REACTIONS (7)
  - LACERATION [None]
  - FALL [None]
  - EPISTAXIS [None]
  - CONFUSIONAL STATE [None]
  - INTERNATIONAL NORMALISED RATIO INCREASED [None]
  - SUBDURAL HAEMATOMA [None]
  - SUBARACHNOID HAEMORRHAGE [None]
